FAERS Safety Report 7921570-2 (Version None)
Quarter: 2011Q4

REPORT INFORMATION
  Report Type: 
  Country: None (occurrence: None)
  Receive Date: 20111117
  Receipt Date: 20111115
  Transmission Date: 20120403
  Serious: Yes (Death, Other)
  Sender: FDA-Public Use
  Company Number: PHEH2009US09085

PATIENT
  Sex: Female

DRUGS (12)
  1. PROTONIX [Concomitant]
  2. PROVERA [Concomitant]
  3. COMPAZINE [Concomitant]
  4. ZOMETA [Suspect]
  5. IMODIUM [Concomitant]
  6. ATIVAN [Concomitant]
  7. XANAX [Concomitant]
  8. PAXIL [Concomitant]
     Dosage: 20 MG, DAILY
  9. LISINOPRIL [Concomitant]
     Dosage: 10 MG, DAILY
  10. AREDIA [Suspect]
  11. PAMIDRONATE DISODIUM [Suspect]
  12. DEPAKOTE [Concomitant]
     Dosage: 250 MG, TID

REACTIONS (33)
  - PAIN [None]
  - DISABILITY [None]
  - INJURY [None]
  - OSTEOPOROSIS [None]
  - MITRAL VALVE INCOMPETENCE [None]
  - PULMONARY HYPERTENSION [None]
  - INFECTION [None]
  - MUCOSAL INFLAMMATION [None]
  - OSTEONECROSIS OF JAW [None]
  - OVERDOSE [None]
  - HYPERTENSION [None]
  - PULMONARY OEDEMA [None]
  - HYPERLIPIDAEMIA [None]
  - DEFORMITY [None]
  - GINGIVITIS [None]
  - BONE LOSS [None]
  - MIGRAINE [None]
  - BACK PAIN [None]
  - HYPERPARATHYROIDISM [None]
  - ANXIETY [None]
  - PERIODONTAL DISEASE [None]
  - MUSCULOSKELETAL CHEST PAIN [None]
  - DYSPNOEA [None]
  - ENTERITIS [None]
  - TRICUSPID VALVE INCOMPETENCE [None]
  - EMOTIONAL DISTRESS [None]
  - RENAL FAILURE ACUTE [None]
  - ABDOMINAL DISTENSION [None]
  - ABDOMINAL PAIN [None]
  - BENIGN BREAST NEOPLASM [None]
  - CEREBROVASCULAR ACCIDENT [None]
  - MULTIPLE MYELOMA [None]
  - SPINAL OSTEOARTHRITIS [None]
